FAERS Safety Report 7218753-6 (Version None)
Quarter: 2011Q1

REPORT INFORMATION
  Report Type: 
  Country: None (occurrence: None)
  Receive Date: 20110110
  Receipt Date: 20100315
  Transmission Date: 20110831
  Serious: No
  Sender: FDA-Public Use
  Company Number: US-ABBOTT-10P-163-0632821-00

PATIENT
  Age: 62 Year

DRUGS (1)
  1. VICODIN [Suspect]
     Indication: BONE PAIN
     Dosage: AS DIRECTED
     Dates: start: 20100311

REACTIONS (1)
  - DRUG EFFECT DECREASED [None]
